FAERS Safety Report 7312079-8 (Version None)
Quarter: 2011Q1

REPORT INFORMATION
  Report Type: 
  Country: None (occurrence: None)
  Receive Date: 20110224
  Receipt Date: 20110125
  Transmission Date: 20110831
  Serious: Yes (Death)
  Sender: FDA-Public Use
  Company Number: US-TYCO HEALTHCARE/MALLINCKRODT-T201100211

PATIENT
  Age: 30 Year
  Sex: Female

DRUGS (6)
  1. AMITRIPTYLINE [Suspect]
     Route: 048
  2. DULOXETINE [Suspect]
     Route: 048
  3. HYDROCODONE BITARTRATE [Suspect]
     Route: 048
  4. METHADOSE [Suspect]
     Route: 048
  5. OXYCODONE [Suspect]
     Route: 048
  6. GABAPENTIN [Suspect]

REACTIONS (1)
  - CARDIO-RESPIRATORY ARREST [None]
